FAERS Safety Report 9670706 (Version 2)
Quarter: 2014Q1

REPORT INFORMATION
  Report Type: Spontaneous
  Country: GB (occurrence: GB)
  Receive Date: 20131106
  Receipt Date: 20140207
  Transmission Date: 20141002
  Serious: Yes (Life-Threatening, Hospitalization, Other)
  Sender: FDA-Public Use
  Company Number: GB-RANBAXY-2013R1-74814

PATIENT
  Age: 17 Year
  Sex: Female
  Weight: 55 kg

DRUGS (2)
  1. FLUOXETINE [Suspect]
     Indication: DEPRESSION
     Dosage: 20 MG, QD
     Route: 048
     Dates: start: 20130812, end: 20131002
  2. OXYTETRACYCLINE [Concomitant]
     Indication: ACNE
     Route: 065

REACTIONS (6)
  - Abnormal behaviour [Recovered/Resolved with Sequelae]
  - Depersonalisation [Recovered/Resolved with Sequelae]
  - Drug ineffective [Unknown]
  - Disinhibition [Unknown]
  - Overdose [Unknown]
  - Inhibitory drug interaction [Unknown]
